FAERS Safety Report 13600692 (Version 2)
Quarter: 2017Q3

REPORT INFORMATION
  Report Type: Report from Study
  Country: None (occurrence: US)
  Receive Date: 20170601
  Receipt Date: 20170831
  Transmission Date: 20171127
  Serious: Yes (Hospitalization, Other)
  Sender: FDA-Public Use
  Company Number: US-ABBVIE-17K-163-1988883-00

PATIENT
  Age: 25 Year
  Sex: Female
  Weight: 81.72 kg

DRUGS (5)
  1. HUMIRA [Suspect]
     Active Substance: ADALIMUMAB
     Indication: HIDRADENITIS
     Route: 058
     Dates: start: 2016, end: 201701
  2. JANUMET [Concomitant]
     Active Substance: METFORMIN HYDROCHLORIDE\SITAGLIPTIN PHOSPHATE
     Indication: TYPE 2 DIABETES MELLITUS
  3. KLONOPIN [Concomitant]
     Active Substance: CLONAZEPAM
     Indication: ANXIETY
  4. TIZANIDINE. [Concomitant]
     Active Substance: TIZANIDINE
     Indication: MUSCLE RELAXANT THERAPY
  5. KLONOPIN [Concomitant]
     Active Substance: CLONAZEPAM
     Indication: MUSCLE RELAXANT THERAPY

REACTIONS (22)
  - Pulmonary embolism [Unknown]
  - Drug ineffective [Recovered/Resolved]
  - Amnesia [Not Recovered/Not Resolved]
  - Cyclic vomiting syndrome [Unknown]
  - Staphylococcal infection [Unknown]
  - Weight decreased [Recovered/Resolved]
  - Nausea [Unknown]
  - Endotracheal intubation complication [Unknown]
  - Central nervous system lesion [Unknown]
  - Fall [Recovered/Resolved]
  - Phantom pain [Not Recovered/Not Resolved]
  - Heart rate increased [Not Recovered/Not Resolved]
  - Guillain-Barre syndrome [Not Recovered/Not Resolved]
  - Pulmonary infarction [Not Recovered/Not Resolved]
  - Cardiac arrest [Unknown]
  - Staphylococcal infection [Recovered/Resolved]
  - Dehydration [Recovered/Resolved]
  - Vitamin B1 deficiency [Unknown]
  - Hypotension [Recovered/Resolved]
  - Wernicke-Korsakoff syndrome [Not Recovered/Not Resolved]
  - Staphylococcal infection [Unknown]
  - Hallucination [Not Recovered/Not Resolved]

NARRATIVE: CASE EVENT DATE: 201611
